FAERS Safety Report 10248904 (Version 1)
Quarter: 2014Q2

REPORT INFORMATION
  Report Type: Spontaneous
  Country: FR (occurrence: FR)
  Receive Date: 20140620
  Receipt Date: 20140620
  Transmission Date: 20141212
  Serious: Yes (Hospitalization)
  Sender: FDA-Public Use
  Company Number: FR-TAKEDA-2014JNJ004003

PATIENT
  Sex: 0

DRUGS (2)
  1. VELCADE [Suspect]
     Indication: PRODUCT USED FOR UNKNOWN INDICATION
     Dosage: 1.8 UNK, UNK
     Route: 065
  2. VELCADE [Suspect]
     Dosage: 2.6 MG, UNK
     Route: 058

REACTIONS (2)
  - Incorrect dose administered [Unknown]
  - Overdose [Unknown]
